FAERS Safety Report 6225894-9 (Version None)
Quarter: 2009Q2

REPORT INFORMATION
  Report Type: 
  Country: None (occurrence: None)
  Receive Date: 20090612
  Receipt Date: 20090504
  Transmission Date: 20091009
  Serious: No
  Sender: FDA-Public Use
  Company Number: US-ABBOTT-09P-163-0571475-00

PATIENT
  Sex: Female
  Weight: 90.8 kg

DRUGS (7)
  1. HUMIRA [Suspect]
     Indication: PSORIASIS
     Route: 058
     Dates: start: 20090301
  2. LEVOTHYROXINE [Concomitant]
     Indication: HYPOTHYROIDISM
     Route: 048
  3. ZOLOFT [Concomitant]
     Indication: DEPRESSION
     Route: 048
  4. ZOLOFT [Concomitant]
     Indication: ANXIETY
  5. VOLTAREN [Concomitant]
     Indication: BACK PAIN
     Route: 048
     Dates: start: 20090504
  6. VITAMIN E [Concomitant]
     Indication: MEDICAL DIET
     Route: 048
     Dates: start: 20090504
  7. ASCORBIC ACID [Concomitant]
     Indication: MEDICAL DIET
     Route: 048
     Dates: start: 20090504

REACTIONS (2)
  - INJECTION SITE HAEMATOMA [None]
  - INJECTION SITE IRRITATION [None]
